FAERS Safety Report 5974643-8 (Version None)
Quarter: 2008Q4

REPORT INFORMATION
  Report Type: 
  Country: None (occurrence: None)
  Receive Date: 20081201
  Receipt Date: 20081124
  Transmission Date: 20090506
  Serious: Yes (Other)
  Sender: FDA-Public Use
  Company Number: BR-PFIZER INC-2008100211

PATIENT
  Sex: Male

DRUGS (3)
  1. VIAGRA [Suspect]
     Indication: ERECTILE DYSFUNCTION
     Route: 048
     Dates: start: 20000101
  2. OMEPRAZOLE [Concomitant]
     Dates: start: 20030101
  3. ALENDRONATE SODIUM [Concomitant]
     Dates: start: 20050101

REACTIONS (6)
  - CEREBRAL DISORDER [None]
  - DYSPNOEA [None]
  - GASTRIC ULCER [None]
  - HEARING IMPAIRED [None]
  - MEMORY IMPAIRMENT [None]
  - SPINAL FRACTURE [None]
